FAERS Safety Report 12110685 (Version 1)
Quarter: 2016Q1

REPORT INFORMATION
  Report Type: Spontaneous
  Country: FR (occurrence: FR)
  Receive Date: 20160224
  Receipt Date: 20160224
  Transmission Date: 20160526
  Serious: Yes (Hospitalization)
  Sender: FDA-Public Use
  Company Number: FR-SA-2016SA019211

PATIENT
  Age: 76 Year
  Sex: Male

DRUGS (26)
  1. MIDAZOLAM [Concomitant]
     Active Substance: MIDAZOLAM\MIDAZOLAM HYDROCHLORIDE
     Route: 042
  2. PANTOPRAZOLE [Suspect]
     Active Substance: PANTOPRAZOLE SODIUM
     Route: 048
     Dates: start: 20150528, end: 20150616
  3. TAZOCILLINE [Concomitant]
     Active Substance: PIPERACILLIN SODIUM\TAZOBACTAM SODIUM
  4. AUGMENTIN [Concomitant]
     Active Substance: AMOXICILLIN\CLAVULANATE POTASSIUM
  5. LASILIX [Suspect]
     Active Substance: FUROSEMIDE
     Route: 042
     Dates: start: 20150609, end: 20150616
  6. METOCLOPRAMIDE. [Concomitant]
     Active Substance: METOCLOPRAMIDE
  7. ATROVENT [Concomitant]
     Active Substance: IPRATROPIUM BROMIDE
  8. LASILIX [Suspect]
     Active Substance: FUROSEMIDE
     Route: 042
     Dates: start: 20150620, end: 20150623
  9. AMIODARONE [Suspect]
     Active Substance: AMIODARONE
     Route: 065
     Dates: start: 20150620, end: 20150623
  10. TIENAM [Suspect]
     Active Substance: CILASTATIN SODIUM\IMIPENEM
     Route: 042
     Dates: start: 20150613, end: 20150616
  11. LINEZOLID. [Concomitant]
     Active Substance: LINEZOLID
  12. CIFLOX [Concomitant]
     Active Substance: CIPROFLOXACIN
  13. CEFTAZIDIME. [Concomitant]
     Active Substance: CEFTAZIDIME
  14. PROPOFOL. [Concomitant]
     Active Substance: PROPOFOL
  15. FLUCONAZOLE. [Concomitant]
     Active Substance: FLUCONAZOLE
  16. AMIODARONE [Suspect]
     Active Substance: AMIODARONE
     Route: 065
  17. HEPARINE CHOAY [Suspect]
     Active Substance: HEPARIN SODIUM
     Route: 042
     Dates: start: 20150611, end: 20150616
  18. LEVETIRACETAM. [Suspect]
     Active Substance: LEVETIRACETAM
     Route: 042
     Dates: start: 20150529, end: 20150617
  19. CANCIDAS [Suspect]
     Active Substance: CASPOFUNGIN ACETATE
     Dosage: INTRAVENOUS (INFUSION)
     Dates: start: 20150612, end: 20150616
  20. URAPIDIL [Concomitant]
     Active Substance: URAPIDIL
  21. SALBUTAMOL [Concomitant]
     Active Substance: ALBUTEROL
  22. RIVOTRIL [Concomitant]
     Active Substance: CLONAZEPAM
  23. NIMBEX [Concomitant]
     Active Substance: CISATRACURIUM BESYLATE
  24. CLONIDINE HYDROCHLORIDE. [Concomitant]
     Active Substance: CLONIDINE HYDROCHLORIDE
  25. ROSUVASTATIN [Concomitant]
     Active Substance: ROSUVASTATIN
  26. NOREPINEPHRINE [Concomitant]
     Active Substance: NOREPINEPHRINE\NOREPINEPHRINE BITARTRATE

REACTIONS (1)
  - Toxic skin eruption [Recovered/Resolved]

NARRATIVE: CASE EVENT DATE: 20150616
